FAERS Safety Report 18381256 (Version 1)
Quarter: 2020Q4

REPORT INFORMATION
  Report Type: Spontaneous
  Country: IT (occurrence: IT)
  Receive Date: 20201014
  Receipt Date: 20201014
  Transmission Date: 20210114
  Serious: Yes (Hospitalization)
  Sender: FDA-Public Use
  Company Number: IT-ASTRAZENECA-2020SF29529

PATIENT
  Age: 52 Year
  Sex: Female

DRUGS (5)
  1. LEXOTAN [Concomitant]
     Active Substance: BROMAZEPAM
     Dosage: 15 DROPS
  2. LANSOX [Concomitant]
     Active Substance: LANSOPRAZOLE
     Dosage: 30.0MG UNKNOWN
  3. QUETIAPINE. [Suspect]
     Active Substance: QUETIAPINE
     Indication: DEPRESSION
     Dosage: 900.0MG ONCE/SINGLE ADMINISTRATION
     Route: 048
     Dates: start: 20200703, end: 20200703
  4. PREGABALIN. [Concomitant]
     Active Substance: PREGABALIN
     Dosage: 150.0MG UNKNOWN
  5. ZUGLIMET [Concomitant]
     Active Substance: METFORMIN HYDROCHLORIDE
     Dosage: 2550.0MG UNKNOWN

REACTIONS (2)
  - Medication error [Recovering/Resolving]
  - Aphasia [Recovering/Resolving]

NARRATIVE: CASE EVENT DATE: 20200703
